FAERS Safety Report 5164387-7 (Version None)
Quarter: 2006Q4

REPORT INFORMATION
  Report Type: 
  Country: None (occurrence: None)
  Receive Date: 20061205
  Receipt Date: 20060703
  Transmission Date: 20070319
  Serious: Yes (Hospitalization)
  Sender: FDA-Public Use
  Company Number: HQWYE536703JUL06

PATIENT
  Sex: Male
  Weight: 64 kg

DRUGS (6)
  1. ENBREL [Suspect]
     Indication: RHEUMATOID ARTHRITIS
     Route: 058
     Dates: start: 20050624, end: 20060428
  2. INFREE [Concomitant]
     Indication: RHEUMATOID ARTHRITIS
     Route: 048
  3. RANITIDINE HYDROCHLORIDE [Concomitant]
     Route: 048
  4. RHEUMATREX [Concomitant]
     Indication: RHEUMATOID ARTHRITIS
     Dosage: 2 MG, FREQUENCY UNKNOWN
     Route: 048
  5. PREDONINE [Concomitant]
     Indication: RHEUMATOID ARTHRITIS
     Route: 048
     Dates: end: 20050701
  6. RIMATIL [Concomitant]
     Indication: RHEUMATOID ARTHRITIS
     Route: 048

REACTIONS (5)
  - ANGIOPATHY [None]
  - PLATELET COUNT DECREASED [None]
  - PYREXIA [None]
  - RENAL DISORDER [None]
  - RENAL TUBULAR NECROSIS [None]
